FAERS Safety Report 5604319-8 (Version None)
Quarter: 2008Q1

REPORT INFORMATION
  Report Type: 
  Country: None (occurrence: None)
  Receive Date: 20080128
  Receipt Date: 20080123
  Transmission Date: 20080703
  Serious: Yes (Death)
  Sender: FDA-Public Use
  Company Number: A0704911A

PATIENT
  Age: 70 Year
  Sex: Male

DRUGS (2)
  1. COREG CR [Suspect]
     Indication: CARDIAC FAILURE CONGESTIVE
     Dosage: 40MG PER DAY
     Route: 048
  2. NO CONCURRENT MEDICATION [Concomitant]

REACTIONS (2)
  - RENAL FAILURE [None]
  - RIGHT VENTRICULAR FAILURE [None]
